FAERS Safety Report 4475297-2 (Version None)
Quarter: 2004Q4

REPORT INFORMATION
  Report Type: 
  Country: None (occurrence: None)
  Receive Date: 20041012
  Receipt Date: 20040928
  Transmission Date: 20050328
  Serious: Yes (Other)
  Sender: FDA-Public Use
  Company Number: 2004235861US

PATIENT
  Age: 39 Year
  Sex: Male

DRUGS (8)
  1. MYCOBUTIN [Suspect]
     Indication: CERVICAL GLAND TUBERCULOSIS
     Dosage: 450 MG, 1350 MG
  2. ISONIAZID [Suspect]
     Indication: CERVICAL GLAND TUBERCULOSIS
     Dosage: 300 + 750 + 1350 MG
  3. EFAVIRENZ(EFAVIRENZ) [Suspect]
     Indication: HIV INFECTION
     Dosage: 600 MG
  4. TENOFIVIR [Concomitant]
  5. LAMIVUDINE [Concomitant]
  6. ETHAMBUTOL (ETHAMBUTOL) [Concomitant]
  7. PYRAZINAMIDE [Concomitant]
  8. PREDNISOLONE [Concomitant]

REACTIONS (5)
  - DRUG INEFFECTIVE [None]
  - DRUG INTERACTION [None]
  - DRUG LEVEL BELOW THERAPEUTIC [None]
  - IRITIS [None]
  - LYMPHADENOPATHY [None]
